FAERS Safety Report 23574608 (Version 1)
Quarter: 2024Q1

REPORT INFORMATION
  Report Type: Spontaneous
  Country: US (occurrence: US)
  Receive Date: 20240228
  Receipt Date: 20240228
  Transmission Date: 20240410
  Serious: Yes (Other)
  Sender: FDA-Public Use
  Company Number: US-SUN PHARMACEUTICAL INDUSTRIES LTD-2024R1-433505

PATIENT
  Age: 79 Year
  Sex: Male

DRUGS (1)
  1. BROMFENAC [Suspect]
     Active Substance: BROMFENAC SODIUM
     Indication: Product used for unknown indication
     Dosage: UNK, BID
     Route: 047

REACTIONS (1)
  - Condition aggravated [Unknown]
